FAERS Safety Report 6187239-2 (Version None)
Quarter: 2009Q2

REPORT INFORMATION
  Report Type: 
  Country: None (occurrence: None)
  Receive Date: 20090512
  Receipt Date: 20090508
  Transmission Date: 20091009
  Serious: Yes (Life-Threatening, Hospitalization, Other)
  Sender: FDA-Public Use
  Company Number: PHHY2008CA27990

PATIENT
  Sex: Male

DRUGS (2)
  1. SANDOSTATIN LAR [Suspect]
     Indication: PHAEOCHROMOCYTOMA
     Dosage: 20 MG, QMO
     Route: 030
     Dates: start: 20070426, end: 20081002
  2. SANDOSTATIN LAR [Suspect]
     Indication: METASTATIC NEOPLASM
     Dosage: 20 MG, QMO
     Route: 030
     Dates: start: 20081223

REACTIONS (11)
  - CARDIOMEGALY [None]
  - CATHETER RELATED INFECTION [None]
  - CLOSTRIDIAL INFECTION [None]
  - FUNGAL INFECTION [None]
  - HEART RATE INCREASED [None]
  - HERNIA REPAIR [None]
  - ILEOSTOMY [None]
  - INTESTINAL OBSTRUCTION [None]
  - SEPSIS [None]
  - URINARY TRACT INFECTION [None]
  - VOMITING [None]
